FAERS Safety Report 10401832 (Version 1)
Quarter: 2014Q1

REPORT INFORMATION
  Report Type: Spontaneous
  Country: US (occurrence: None)
  Receive Date: 20130815
  Receipt Date: 20130815
  Transmission Date: 20141002
  Serious: Yes (Other)
  Sender: FDA-Public Use
  Company Number: ADR-2012-01885

PATIENT
  Sex: Male

DRUGS (3)
  1. BACLOFEN INTRATHECAL [Suspect]
     Indication: MUSCLE SPASTICITY
  2. BUPIVACAINE [Concomitant]
  3. DILAUDID (HYDROMORPHONE) [Concomitant]

REACTIONS (5)
  - Abdominal pain [None]
  - Muscle spasticity [None]
  - Pain [None]
  - Autonomic dysreflexia [None]
  - Medical device discomfort [None]
